FAERS Safety Report 15592188 (Version 4)
Quarter: 2018Q4

REPORT INFORMATION
  Report Type: Spontaneous
  Country: FR (occurrence: FR)
  Receive Date: 20181106
  Receipt Date: 20181207
  Transmission Date: 20190205
  Serious: Yes (Other)
  Sender: FDA-Public Use
  Company Number: FR-ALLERGAN-1819476US

PATIENT
  Age: 57 Year
  Sex: Female

DRUGS (1)
  1. OZURDEX [Suspect]
     Active Substance: DEXAMETHASONE
     Indication: MACULAR OEDEMA
     Dosage: 0.7 MG, SINGLE
     Route: 031
     Dates: start: 20180214, end: 20180214

REACTIONS (20)
  - Dizziness [Not Recovered/Not Resolved]
  - Vision blurred [Unknown]
  - Vitreous haemorrhage [Unknown]
  - Photopsia [Unknown]
  - Lacrimation increased [Unknown]
  - Cataract [Unknown]
  - Vertigo [Not Recovered/Not Resolved]
  - Myopia [Unknown]
  - Complication of device insertion [Unknown]
  - Drug effect incomplete [Unknown]
  - Eye pruritus [Unknown]
  - Iris disorder [Unknown]
  - Intraocular pressure increased [Unknown]
  - Recalled product administered [Unknown]
  - Migraine [Not Recovered/Not Resolved]
  - Eye discharge [Unknown]
  - Diplopia [Unknown]
  - Hypertension [Unknown]
  - Ocular hyperaemia [Unknown]
  - Headache [Unknown]

NARRATIVE: CASE EVENT DATE: 20180214
